FAERS Safety Report 20617624 (Version 1)
Quarter: 2022Q1

REPORT INFORMATION
  Report Type: Spontaneous
  Country: GB (occurrence: GB)
  Receive Date: 20220321
  Receipt Date: 20220321
  Transmission Date: 20220423
  Serious: Yes (Hospitalization, Other)
  Sender: FDA-Public Use
  Company Number: GB-AMGEN-GBRSP2022044847

PATIENT
  Age: 51 Year
  Sex: Male
  Weight: 118.3 kg

DRUGS (4)
  1. ADALIMUMAB [Suspect]
     Active Substance: ADALIMUMAB
     Indication: Psoriasis
     Dosage: 40 MILLIGRAM, Q2WK
     Route: 065
     Dates: start: 20190213
  2. THIAMINE HYDROCHLORIDE [Concomitant]
     Active Substance: THIAMINE HYDROCHLORIDE
     Dosage: UNK
     Dates: start: 20171103
  3. FUROSEMIDE [Concomitant]
     Active Substance: FUROSEMIDE
     Dosage: UNK
     Dates: start: 20200709
  4. FLUTICASONE [Concomitant]
     Active Substance: FLUTICASONE
     Dosage: UNK
     Dates: start: 20200713

REACTIONS (4)
  - Chronic obstructive pulmonary disease [Recovered/Resolved with Sequelae]
  - Wound infection [Recovered/Resolved]
  - Respiratory failure [Recovered/Resolved with Sequelae]
  - Limb injury [Recovered/Resolved]

NARRATIVE: CASE EVENT DATE: 20200416
